FAERS Safety Report 7971756-6 (Version None)
Quarter: 2011Q4

REPORT INFORMATION
  Report Type: 
  Country: None (occurrence: None)
  Receive Date: 20111212
  Receipt Date: 20111205
  Transmission Date: 20120403
  Serious: Yes (Other)
  Sender: FDA-Public Use
  Company Number: CHPA2011US017464

PATIENT
  Age: 78 Year
  Sex: Female

DRUGS (2)
  1. DRUG THERAPY NOS [Concomitant]
     Indication: CROHN'S DISEASE
     Dosage: UNK DF, UNK
  2. EXCEDRIN (MIGRAINE) [Suspect]
     Indication: MIGRAINE
     Dosage: 2 DF, QHS
     Route: 048

REACTIONS (2)
  - CONVULSION [None]
  - CEREBROVASCULAR ACCIDENT [None]
